FAERS Safety Report 8313358 (Version 9)
Quarter: 2013Q1

REPORT INFORMATION
  Report Type: Spontaneous
  Country: US (occurrence: US)
  Receive Date: 20111228
  Receipt Date: 20130329
  Transmission Date: 20140127
  Serious: Yes (Life-Threatening, Hospitalization)
  Sender: FDA-Public Use
  Company Number: US-US-EMD SERONO, INC.-7103023

PATIENT
  Sex: Female

DRUGS (3)
  1. REBIF [Suspect]
     Indication: MULTIPLE SCLEROSIS
     Route: 058
     Dates: start: 20100629, end: 20110310
  2. REBIF [Suspect]
     Route: 058
     Dates: start: 20110630, end: 201211
  3. ZOLOFT [Concomitant]
     Indication: DEPRESSION

REACTIONS (9)
  - Grand mal convulsion [Recovering/Resolving]
  - Infection [Recovering/Resolving]
  - Urinary tract infection [Unknown]
  - Multiple sclerosis relapse [Recovering/Resolving]
  - Delirium [Unknown]
  - Multiple sclerosis [Unknown]
  - Asthenia [Recovering/Resolving]
  - Depressed mood [Not Recovered/Not Resolved]
  - Influenza like illness [Unknown]
